FAERS Safety Report 23602140 (Version 11)
Quarter: 2025Q3

REPORT INFORMATION
  Report Type: Report from Study
  Country: CA (occurrence: CA)
  Receive Date: 20240306
  Receipt Date: 20250929
  Transmission Date: 20251021
  Serious: Yes (Death, Hospitalization, Other)
  Sender: TAKEDA
  Company Number: CA-TAKEDA-2023TUS005453

PATIENT
  Age: 75 Year
  Sex: Female

DRUGS (12)
  1. HUMAN IMMUNOGLOBULIN G [Suspect]
     Active Substance: HUMAN IMMUNOGLOBULIN G
     Indication: Secondary immunodeficiency
     Dosage: 7 GRAM, 1/WEEK
     Dates: start: 20230106
  2. HUMAN IMMUNOGLOBULIN G [Suspect]
     Active Substance: HUMAN IMMUNOGLOBULIN G
     Dosage: 7 GRAM, 1/WEEK
  3. HUMAN IMMUNOGLOBULIN G [Suspect]
     Active Substance: HUMAN IMMUNOGLOBULIN G
     Dosage: 7 GRAM, 1/WEEK
  4. HUMAN IMMUNOGLOBULIN G [Suspect]
     Active Substance: HUMAN IMMUNOGLOBULIN G
     Dosage: 7 GRAM, 1/WEEK
  5. HYQVIA [Suspect]
     Active Substance: HUMAN IMMUNOGLOBULIN G\HYALURONIDASE (HUMAN RECOMBINANT)
     Indication: Secondary immunodeficiency
     Dosage: UNK UNK, Q4WEEKS
     Dates: start: 20240909
  6. HYQVIA [Suspect]
     Active Substance: HUMAN IMMUNOGLOBULIN G\HYALURONIDASE (HUMAN RECOMBINANT)
     Dosage: UNK UNK, Q4WEEKS
  7. HYQVIA [Suspect]
     Active Substance: HUMAN IMMUNOGLOBULIN G\HYALURONIDASE (HUMAN RECOMBINANT)
     Dosage: UNK UNK, Q4WEEKS
  8. HYQVIA [Suspect]
     Active Substance: HUMAN IMMUNOGLOBULIN G\HYALURONIDASE (HUMAN RECOMBINANT)
     Dosage: 35 GRAM, Q4WEEKS
  9. HYQVIA [Suspect]
     Active Substance: HUMAN IMMUNOGLOBULIN G\HYALURONIDASE (HUMAN RECOMBINANT)
     Dosage: 35 GRAM, 1/WEEK
  10. HYQVIA [Suspect]
     Active Substance: HUMAN IMMUNOGLOBULIN G\HYALURONIDASE (HUMAN RECOMBINANT)
     Dosage: 35 GRAM, 1/WEEK
  11. HYQVIA [Suspect]
     Active Substance: HUMAN IMMUNOGLOBULIN G\HYALURONIDASE (HUMAN RECOMBINANT)
     Dosage: 3 GRAM, 1/WEEK
  12. ELAPRASE [Concomitant]
     Active Substance: IDURSULFASE

REACTIONS (14)
  - Death [Fatal]
  - General physical health deterioration [Unknown]
  - Dysphagia [Unknown]
  - COVID-19 [Unknown]
  - Dementia [Unknown]
  - Plasma cell myeloma [Not Recovered/Not Resolved]
  - Cataract [Unknown]
  - Oropharyngeal pain [Unknown]
  - Deep vein thrombosis [Unknown]
  - Pulmonary embolism [Unknown]
  - Respiratory tract infection [Unknown]
  - Blood pressure increased [Unknown]
  - Infusion site swelling [Unknown]
  - Pain [Unknown]

NARRATIVE: CASE EVENT DATE: 20230113
